FAERS Safety Report 26174474 (Version 1)
Quarter: 2025Q4

REPORT INFORMATION
  Report Type: Spontaneous
  Country: US (occurrence: US)
  Receive Date: 20251218
  Receipt Date: 20251218
  Transmission Date: 20260117
  Serious: No
  Sender: AMARIN PHARMA, INC.
  Company Number: US-Amarin Pharma  Inc-2025AMR000708

PATIENT
  Sex: Male

DRUGS (3)
  1. VASCEPA [Suspect]
     Active Substance: ICOSAPENT ETHYL
     Indication: Product used for unknown indication
  2. VASCEPA [Suspect]
     Active Substance: ICOSAPENT ETHYL
  3. VASCEPA [Suspect]
     Active Substance: ICOSAPENT ETHYL
     Dosage: INTERRUPTED (PHARMACY ATTEMPTED TO GIVE GENERIC IPE)

REACTIONS (9)
  - Poor quality product administered [Unknown]
  - Therapy interrupted [Unknown]
  - Product dispensing error [Unknown]
  - Product container issue [Unknown]
  - Product container seal issue [Unknown]
  - Product leakage [Unknown]
  - Product odour abnormal [Unknown]
  - Product physical issue [Unknown]
  - Product colour issue [Unknown]
